FAERS Safety Report 6670973-5 (Version None)
Quarter: 2010Q2

REPORT INFORMATION
  Report Type: 
  Country: None (occurrence: None)
  Receive Date: 20100407
  Receipt Date: 20100329
  Transmission Date: 20101027
  Serious: Yes (Hospitalization)
  Sender: FDA-Public Use
  Company Number: DE-MEDIMMUNE-MEDI-0010881

PATIENT
  Age: 1 Month
  Sex: Female

DRUGS (2)
  1. SYNAGIS [Suspect]
     Dates: start: 20091208, end: 20091208
  2. SYNAGIS [Suspect]
     Dates: start: 20100108, end: 20100108

REACTIONS (1)
  - OBLITERATIVE BRONCHIOLITIS [None]
